FAERS Safety Report 8439466-9 (Version None)
Quarter: 2012Q2

REPORT INFORMATION
  Report Type: 
  Country: None (occurrence: None)
  Receive Date: 20120615
  Receipt Date: 20120606
  Transmission Date: 20120825
  Serious: Yes (Disabling)
  Sender: FDA-Public Use
  Company Number: HR-JNJFOC-20120604664

PATIENT
  Age: 20 Year
  Sex: Male
  Weight: 90 kg

DRUGS (8)
  1. RISPERIDONE [Suspect]
     Route: 030
     Dates: start: 20080512, end: 20111024
  2. ZOLPIDEM TARTRATE [Concomitant]
     Indication: PRODUCT USED FOR UNKNOWN INDICATION
     Route: 065
  3. SERTRALINE HYDROCHLORIDE [Concomitant]
     Indication: PRODUCT USED FOR UNKNOWN INDICATION
     Route: 065
  4. RISPERIDONE [Suspect]
     Indication: SCHIZOPHRENIA
     Dosage: VARIED 6 MG TO 8 MG
     Route: 048
     Dates: start: 20080424, end: 20111104
  5. RISPERIDONE [Suspect]
     Indication: SCHIZOPHRENIA
     Route: 030
  6. AKINETON [Concomitant]
     Indication: PRODUCT USED FOR UNKNOWN INDICATION
     Route: 065
  7. CLOZAPINE [Suspect]
     Indication: SCHIZOPHRENIA
     Dosage: 25 TO 250 MG PER DAY
     Route: 065
     Dates: start: 20080620, end: 20111104
  8. DIAZEPAM [Concomitant]
     Indication: PRODUCT USED FOR UNKNOWN INDICATION
     Route: 065

REACTIONS (6)
  - TREMOR [None]
  - MYOCLONUS [None]
  - PARKINSONISM [None]
  - INAPPROPRIATE SCHEDULE OF DRUG ADMINISTRATION [None]
  - DYSTONIA [None]
  - STIFF PERSON SYNDROME [None]
